APPROVED DRUG PRODUCT: TRAVOPROST
Active Ingredient: TRAVOPROST
Strength: 0.004%
Dosage Form/Route: SOLUTION/DROPS;OPHTHALMIC
Application: A091340 | Product #001
Applicant: CHARTWELL RX SCIENCES LLC
Approved: Mar 1, 2013 | RLD: No | RS: Yes | Type: RX